FAERS Safety Report 19456663 (Version 1)
Quarter: 2021Q2

REPORT INFORMATION
  Report Type: Spontaneous
  Country: JP (occurrence: JP)
  Receive Date: 20210624
  Receipt Date: 20210624
  Transmission Date: 20210717
  Serious: Yes (Hospitalization, Other)
  Sender: FDA-Public Use
  Company Number: NVSJ2021JP009559

PATIENT
  Sex: Female

DRUGS (1)
  1. ENERZAIR [Suspect]
     Active Substance: GLYCOPYRROLATE\INDACATEROL\MOMETASONE FUROATE
     Indication: ASTHMA
     Dosage: 1DF:INDACATEROL ACETATE150UG,GLYCOPYRRONIUM BROMIDE50UG,MOMETASONE FUROATE80UG
     Route: 055
     Dates: start: 202101, end: 202106

REACTIONS (1)
  - Pneumonia aspiration [Recovering/Resolving]

NARRATIVE: CASE EVENT DATE: 202106
